FAERS Safety Report 9691925 (Version 1)
Quarter: 2013Q4

REPORT INFORMATION
  Report Type: Spontaneous
  Country: US (occurrence: US)
  Receive Date: 20131118
  Receipt Date: 20131118
  Transmission Date: 20140711
  Serious: Yes (Other)
  Sender: FDA-Public Use
  Company Number: US-AMGEN-USASP2013080534

PATIENT
  Age: 88 Year
  Sex: Male
  Weight: 71.2 kg

DRUGS (6)
  1. PROCRIT [Suspect]
     Indication: MYELODYSPLASTIC SYNDROME
     Dosage: UNK
     Route: 065
     Dates: start: 20131031, end: 20131031
  2. XARELTO [Suspect]
     Indication: ARRHYTHMIA PROPHYLAXIS
     Dosage: 15 MG, QD
     Route: 048
     Dates: start: 201308
  3. VITAMIN B12                        /00056201/ [Concomitant]
     Indication: MYELODYSPLASTIC SYNDROME
     Dosage: 100 MUG, UNK
     Dates: start: 201304
  4. VITAMIN B6 [Concomitant]
     Indication: MYELODYSPLASTIC SYNDROME
     Dosage: 400 MUG, UNK
     Dates: start: 201304
  5. FOLIC ACID [Concomitant]
     Indication: MYELODYSPLASTIC SYNDROME
     Dosage: 400 MUG, QD
     Route: 048
     Dates: start: 201304
  6. D3 [Concomitant]
     Indication: MYELODYSPLASTIC SYNDROME
     Dosage: UNK
     Dates: start: 201304

REACTIONS (2)
  - Blood test abnormal [Unknown]
  - Iron overload [Unknown]
